FAERS Safety Report 14834814 (Version 1)
Quarter: 2018Q2

REPORT INFORMATION
  Report Type: Spontaneous
  Country: US (occurrence: US)
  Receive Date: 20180501
  Receipt Date: 20180501
  Transmission Date: 20180711
  Serious: Yes (Other)
  Sender: FDA-Public Use
  Company Number: US-GLAXOSMITHKLINE-US2018GSK076142

PATIENT
  Sex: Female

DRUGS (1)
  1. LAMICTAL [Suspect]
     Active Substance: LAMOTRIGINE
     Indication: PRODUCT USED FOR UNKNOWN INDICATION
     Dosage: UNK

REACTIONS (6)
  - Exposure to mould [Unknown]
  - Mycotoxicosis [Unknown]
  - Drug ineffective [Unknown]
  - Product substitution issue [Unknown]
  - Inability to afford medication [Unknown]
  - Malaise [Unknown]

NARRATIVE: CASE EVENT DATE: 201610
